FAERS Safety Report 15084559 (Version 1)
Quarter: 2018Q2

REPORT INFORMATION
  Report Type: Spontaneous
  Country: US (occurrence: US)
  Receive Date: 20180628
  Receipt Date: 20180628
  Transmission Date: 20180711
  Serious: Yes (Hospitalization)
  Sender: FDA-Public Use
  Company Number: US-PFIZER INC-2018258497

PATIENT
  Sex: Female

DRUGS (1)
  1. XELJANZ [Suspect]
     Active Substance: TOFACITINIB CITRATE
     Dosage: 5 MG, 2X/DAY -ONE IN THE MORNING AND ONE IN EVENING WITH FOOD
     Route: 048
     Dates: start: 201805

REACTIONS (3)
  - Red blood cell count decreased [Unknown]
  - Diverticulitis [Unknown]
  - Haemoglobin decreased [Unknown]
